FAERS Safety Report 8596993-1 (Version None)
Quarter: 2012Q3

REPORT INFORMATION
  Report Type: 
  Country: None (occurrence: None)
  Receive Date: 20120815
  Receipt Date: 20110915
  Transmission Date: 20120928
  Serious: Yes (Other)
  Sender: FDA-Public Use
  Company Number: JP-009507513-1208JPN006219

PATIENT

DRUGS (8)
  1. TEMODAL [Suspect]
     Indication: ANAPLASTIC ASTROCYTOMA
     Route: 048
     Dates: start: 20100720, end: 20100819
  2. SULFAMETHOXAZOLE AND TRIMETHOPRIM [Concomitant]
     Indication: ANTIFUNGAL PROPHYLAXIS
     Dosage: DAILY DOSAGE UNKNOWN
     Route: 048
     Dates: start: 20100720, end: 20100819
  3. NEO-MERCAZOLE TAB [Concomitant]
     Dosage: DAILY DOSAGE UNKNOWN
     Route: 048
  4. PHENYTOIN SODIUM CAP [Concomitant]
     Dosage: DAILY DOSAGE UNKNOWN
     Route: 048
     Dates: start: 20100629
  5. DEPAKENE [Concomitant]
     Dosage: DAILY DOSAGE UNKNOWN
     Route: 048
     Dates: start: 20100629
  6. RAMELTEON [Concomitant]
     Indication: PROPHYLAXIS
     Dosage: DAILY DOSAGE UNKNOWN
     Route: 048
     Dates: start: 20100720, end: 20100819
  7. FAMOTIDINE [Concomitant]
     Dosage: DAILY DOSAGE UNKNOWN
     Route: 048
     Dates: start: 20100629
  8. NORVASC [Concomitant]
     Dosage: DAILY DOSAGE UNKNOWN
     Route: 048
     Dates: start: 20100629

REACTIONS (3)
  - MENINGITIS VIRAL [None]
  - TREMOR [None]
  - WHITE BLOOD CELL COUNT DECREASED [None]
